FAERS Safety Report 20941103 (Version 1)
Quarter: 2022Q2

REPORT INFORMATION
  Report Type: Spontaneous
  Country: FR (occurrence: FR)
  Receive Date: 20220609
  Receipt Date: 20220609
  Transmission Date: 20220721
  Serious: Yes (Hospitalization)
  Sender: FDA-Public Use
  Company Number: FR-AMNEAL PHARMACEUTICALS-2022-AMRX-01651

PATIENT
  Age: 83 Year
  Sex: Female
  Weight: 72 kg

DRUGS (2)
  1. ALBENZA [Suspect]
     Active Substance: ALBENDAZOLE
     Indication: Hepatic echinococciasis
     Dosage: 4000 MILLIGRAM, QD
     Route: 048
     Dates: start: 20220330, end: 20220331
  2. RACECADOTRIL [Suspect]
     Active Substance: RACECADOTRIL
     Indication: Diarrhoea
     Dosage: 300 MILLIGRAM, QD
     Route: 048
     Dates: start: 20220329, end: 20220415

REACTIONS (2)
  - Erythema [Recovered/Resolved]
  - Face oedema [Recovered/Resolved]

NARRATIVE: CASE EVENT DATE: 20220330
